FAERS Safety Report 5880527-6 (Version None)
Quarter: 2008Q3

REPORT INFORMATION
  Report Type: 
  Country: None (occurrence: None)
  Receive Date: 20080912
  Receipt Date: 20080602
  Transmission Date: 20090109
  Serious: No
  Sender: FDA-Public Use
  Company Number: US-ABBOTT-08P-163-0454493-00

PATIENT
  Sex: Female
  Weight: 89.892 kg

DRUGS (13)
  1. HUMIRA [Suspect]
     Indication: RHEUMATOID ARTHRITIS
     Route: 058
     Dates: start: 20080410
  2. MORPHINE [Concomitant]
     Indication: PAIN
     Dosage: EVERY HOURS
     Dates: start: 20061201
  3. MODAFINIL [Concomitant]
     Indication: SLEEP DISORDER
     Dosage: 2-200 MG, EVERY MORNING
     Dates: start: 20040101
  4. FAMOTIDINE [Concomitant]
     Indication: GASTRIC DISORDER
     Dates: start: 20070801
  5. MIRTAZAPINE [Concomitant]
     Indication: INSOMNIA
     Dates: start: 20080101
  6. NORTRIPTYLINE HCL [Concomitant]
     Indication: MIGRAINE
     Dates: start: 19980101
  7. OMEPRAZOLE [Concomitant]
     Indication: GASTRIC DISORDER
     Dates: start: 20070801
  8. DULOXETINE HYDROCHLORIDE [Concomitant]
     Indication: DEPRESSION
     Dosage: TWO 60 MG, EVERY MORNING
     Dates: start: 20020101
  9. DULOXETINE HYDROCHLORIDE [Concomitant]
     Indication: ANXIETY
  10. HYDROXYCHLOROQUINE SULFATE [Concomitant]
     Indication: RHEUMATOID ARTHRITIS
     Dates: start: 20071201
  11. PREDNISONE TAB [Concomitant]
     Indication: RHEUMATOID ARTHRITIS
     Dates: start: 20071201
  12. METOCLOPRAMIDE [Concomitant]
     Indication: GASTRIC DISORDER
     Dates: start: 20070801
  13. DIAZEPAM [Concomitant]
     Indication: INSOMNIA
     Dates: start: 20030101

REACTIONS (1)
  - METRORRHAGIA [None]
